FAERS Safety Report 18241183 (Version 1)
Quarter: 2020Q3

REPORT INFORMATION
  Report Type: Spontaneous
  Country: GB (occurrence: GB)
  Receive Date: 20200906
  Receipt Date: 20200906
  Transmission Date: 20201103
  Serious: Yes (Disabling)
  Sender: FDA-Public Use
  Company Number: None

PATIENT
  Age: 46 Year
  Sex: Male
  Weight: 82.5 kg

DRUGS (4)
  1. VENLAFAXINE [Concomitant]
     Active Substance: VENLAFAXINE HYDROCHLORIDE
  2. COD LIVER OIL [Concomitant]
     Active Substance: COD LIVER OIL
  3. MIRTAZAPINE. [Suspect]
     Active Substance: MIRTAZAPINE
     Indication: PRODUCT USED FOR UNKNOWN INDICATION
     Dosage: ?          QUANTITY:1.5 TABLET(S);?
     Route: 048
     Dates: start: 20200201, end: 20200830
  4. VIT D [Concomitant]
     Active Substance: VITAMIN D NOS

REACTIONS (9)
  - Feeling hot [None]
  - Product complaint [None]
  - Drug withdrawal syndrome [None]
  - Muscle spasms [None]
  - Muscle rigidity [None]
  - Flushing [None]
  - Hallucination [None]
  - Vertigo [None]
  - Illness [None]

NARRATIVE: CASE EVENT DATE: 20200830
